FAERS Safety Report 25900424 (Version 1)
Quarter: 2025Q4

REPORT INFORMATION
  Report Type: Spontaneous
  Country: US (occurrence: None)
  Receive Date: 20251008
  Receipt Date: 20251008
  Transmission Date: 20260117
  Serious: Yes (Hospitalization)
  Sender: FDA-CTU
  Company Number: None

PATIENT
  Age: 46 Year
  Sex: Female

DRUGS (5)
  1. TACROLIMUS [Suspect]
     Active Substance: TACROLIMUS
     Indication: Renal transplant
     Dosage: OTHER FREQUENCY : EVERY12HOURS;?
     Route: 048
     Dates: start: 20230914
  2. CALC CITR+D3 TAB 200-250 [Concomitant]
  3. MULTIVITAMIN CAP [Concomitant]
  4. MYCOPHENOLIC ACID [Concomitant]
     Active Substance: MYCOPHENOLIC ACID
  5. VIT B12/FA TAB [Concomitant]

REACTIONS (1)
  - Kidney infection [None]

NARRATIVE: CASE EVENT DATE: 20251001
